FAERS Safety Report 7774934-4 (Version None)
Quarter: 2011Q3

REPORT INFORMATION
  Report Type: 
  Country: None (occurrence: None)
  Receive Date: 20110923
  Receipt Date: 20110916
  Transmission Date: 20111222
  Serious: Yes (Life-Threatening, Hospitalization, Other)
  Sender: FDA-Public Use
  Company Number: BE-PFIZER INC-2011221322

PATIENT
  Age: 59 Year

DRUGS (3)
  1. AMLODIPINE BESYLATE [Suspect]
     Dosage: 30 TABLETS OF 10MG
  2. BISOPROLOL FUMARATE [Suspect]
     Dosage: 56 TABLETS OF 10MG TABLETS
  3. HYGROTON [Suspect]
     Dosage: 50 TABLETS OF 50MG TABLET

REACTIONS (4)
  - BRADYCARDIA [None]
  - HYPOTENSION [None]
  - INTENTIONAL OVERDOSE [None]
  - MENTAL STATUS CHANGES [None]
